FAERS Safety Report 7288591-7 (Version None)
Quarter: 2011Q1

REPORT INFORMATION
  Report Type: 
  Country: None (occurrence: None)
  Receive Date: 20110211
  Receipt Date: 20110201
  Transmission Date: 20110831
  Serious: Yes (Hospitalization)
  Sender: FDA-Public Use
  Company Number: JP-SANOFI-AVENTIS-2011SA001923

PATIENT
  Age: 70 Year
  Sex: Male
  Weight: 70 kg

DRUGS (14)
  1. DEXAMETHASONE [Concomitant]
     Indication: PROPHYLAXIS OF NAUSEA AND VOMITING
     Route: 048
     Dates: start: 20101208, end: 20101228
  2. CALCIUM LEVOFOLINATE [Concomitant]
     Indication: RECTAL CANCER
     Route: 041
     Dates: start: 20101207, end: 20101207
  3. ELPLAT [Suspect]
     Indication: RECTAL CANCER
     Route: 041
     Dates: start: 20101207, end: 20101207
  4. EMEND [Concomitant]
     Indication: PROPHYLAXIS OF NAUSEA AND VOMITING
     Dosage: 125-80 MG
     Route: 048
     Dates: start: 20101207, end: 20101228
  5. AMOBAN [Concomitant]
     Indication: INSOMNIA
     Route: 048
     Dates: start: 20101208, end: 20101228
  6. AVASTIN [Concomitant]
     Route: 041
     Dates: start: 20101227, end: 20101227
  7. 5-FU [Suspect]
     Indication: RECTAL CANCER
     Route: 040
     Dates: start: 20101207, end: 20101207
  8. ELPLAT [Suspect]
     Route: 041
     Dates: start: 20101227, end: 20101227
  9. CALCIUM LEVOFOLINATE [Concomitant]
     Route: 041
     Dates: start: 20101227, end: 20101227
  10. 5-FU [Suspect]
     Route: 040
     Dates: start: 20101227, end: 20101227
  11. 5-FU [Suspect]
     Route: 041
     Dates: start: 20101227, end: 20101228
  12. AVASTIN [Concomitant]
     Indication: RECTAL CANCER
     Route: 041
     Dates: start: 20101207, end: 20101207
  13. 5-FU [Suspect]
     Route: 041
     Dates: start: 20101207, end: 20101208
  14. ATARAX [Concomitant]
     Indication: INSOMNIA
     Route: 030
     Dates: start: 20101208, end: 20101208

REACTIONS (2)
  - HYPERAMMONAEMIA [None]
  - METABOLIC ENCEPHALOPATHY [None]
